FAERS Safety Report 18380452 (Version 1)
Quarter: 2020Q4

REPORT INFORMATION
  Report Type: Spontaneous
  Country: US (occurrence: US)
  Receive Date: 20201009
  Receipt Date: 20201009
  Transmission Date: 20210114
  Serious: No
  Sender: FDA-Public Use
  Company Number: None

PATIENT
  Age: 31 Year
  Sex: Female
  Weight: 64.41 kg

DRUGS (2)
  1. MONTELUKAST [Suspect]
     Active Substance: MONTELUKAST SODIUM
     Indication: RHINITIS ALLERGIC
     Dosage: ?          QUANTITY:1 DF DOSAGE FORM;?
     Route: 048
     Dates: start: 20200701, end: 20200918
  2. CBD [Concomitant]
     Active Substance: CANNABIDIOL

REACTIONS (7)
  - Pyrexia [None]
  - Arthralgia [None]
  - Headache [None]
  - Paraesthesia [None]
  - Pain [None]
  - Rash morbilliform [None]
  - Burning sensation [None]

NARRATIVE: CASE EVENT DATE: 20200918
